FAERS Safety Report 24030797 (Version 1)
Quarter: 2024Q2

REPORT INFORMATION
  Report Type: Spontaneous
  Country: JP (occurrence: JP)
  Receive Date: 20240628
  Receipt Date: 20240628
  Transmission Date: 20240716
  Serious: Yes (Other)
  Sender: FDA-Public Use
  Company Number: JP-PFIZER INC-202400201801

PATIENT

DRUGS (1)
  1. HALCION [Interacting]
     Active Substance: TRIAZOLAM
     Dosage: UNK
     Route: 048

REACTIONS (4)
  - Drug interaction [Unknown]
  - Alcohol interaction [Unknown]
  - Road traffic accident [Unknown]
  - Anterograde amnesia [Unknown]
